FAERS Safety Report 11307108 (Version 1)
Quarter: 2015Q3

REPORT INFORMATION
  Report Type: Spontaneous
  Country: US (occurrence: US)
  Receive Date: 20150723
  Receipt Date: 20150723
  Transmission Date: 20151125
  Serious: Yes (Other)
  Sender: FDA-Public Use
  Company Number: US-JNJFOC-20150717177

PATIENT
  Age: 41 Year
  Sex: Female

DRUGS (11)
  1. IMBRUVICA [Suspect]
     Active Substance: IBRUTINIB
     Indication: CHRONIC LYMPHOCYTIC LEUKAEMIA
     Route: 048
     Dates: start: 20141208
  2. FERROUS SULFATE [Concomitant]
     Active Substance: FERROUS SULFATE\FERROUS SULFATE, DRIED
  3. FISH OIL [Concomitant]
     Active Substance: FISH OIL
  4. LEVETIRACETAM. [Concomitant]
     Active Substance: LEVETIRACETAM
  5. IMBRUVICA [Suspect]
     Active Substance: IBRUTINIB
     Indication: CHRONIC LYMPHOCYTIC LEUKAEMIA
     Route: 048
     Dates: start: 20140707, end: 201407
  6. ROBAXIN [Concomitant]
     Active Substance: METHOCARBAMOL
  7. KLONOPIN [Concomitant]
     Active Substance: CLONAZEPAM
  8. XANAX [Concomitant]
     Active Substance: ALPRAZOLAM
  9. MAGNESIUM [Concomitant]
     Active Substance: MAGNESIUM
  10. NORCO [Concomitant]
     Active Substance: ACETAMINOPHEN\HYDROCODONE BITARTRATE
  11. IGNATIA AMARA [Concomitant]

REACTIONS (3)
  - Syncope [Unknown]
  - Seizure [Not Recovered/Not Resolved]
  - Headache [Unknown]

NARRATIVE: CASE EVENT DATE: 20140908
